FAERS Safety Report 18872569 (Version 1)
Quarter: 2021Q1

REPORT INFORMATION
  Report Type: Spontaneous
  Country: US (occurrence: US)
  Receive Date: 20210210
  Receipt Date: 20210210
  Transmission Date: 20210420
  Serious: Yes (Hospitalization)
  Sender: FDA-Public Use
  Company Number: None

PATIENT
  Age: 64 Year
  Sex: Male

DRUGS (2)
  1. CHLORTHALIDE, OCTREOTIDE [Concomitant]
  2. ICATIBANT [Suspect]
     Active Substance: ICATIBANT ACETATE
     Indication: COMPLEMENT FACTOR ABNORMAL
     Dosage: ?          OTHER FREQUENCY:AS NEEDED FOR HAE;?
     Route: 058
     Dates: start: 20171106

REACTIONS (4)
  - Cancer surgery [None]
  - Small intestine operation [None]
  - Gallbladder operation [None]
  - Liver operation [None]

NARRATIVE: CASE EVENT DATE: 20210131
